FAERS Safety Report 11076764 (Version 5)
Quarter: 2016Q1

REPORT INFORMATION
  Report Type: Spontaneous
  Country: US (occurrence: US)
  Receive Date: 20150429
  Receipt Date: 20160216
  Transmission Date: 20160525
  Serious: Yes (Death, Other)
  Sender: FDA-Public Use
  Company Number: US-BAUSCH-BL-2015-012101

PATIENT
  Age: 72 Year
  Sex: Male
  Weight: 59.02 kg

DRUGS (7)
  1. XENAZINE [Suspect]
     Active Substance: TETRABENAZINE
     Route: 048
  2. CITALOPRAM [Concomitant]
     Active Substance: CITALOPRAM HYDROBROMIDE
     Indication: DEPRESSION
     Route: 048
  3. XENAZINE [Suspect]
     Active Substance: TETRABENAZINE
     Route: 048
     Dates: start: 20150420
  4. ALPRAZOLAM. [Concomitant]
     Active Substance: ALPRAZOLAM
     Indication: ANXIETY
     Route: 048
     Dates: start: 2015
  5. XENAZINE [Suspect]
     Active Substance: TETRABENAZINE
     Indication: HUNTINGTON^S DISEASE
     Dosage: TWO TABLET IN THE MORNING, ONE TABLET AT NOON AND ONE TABLET IN THE EVENING
     Route: 048
     Dates: start: 201503
  6. XENAZINE [Suspect]
     Active Substance: TETRABENAZINE
     Route: 048
     Dates: start: 20150401, end: 201504
  7. XENAZINE [Suspect]
     Active Substance: TETRABENAZINE
     Route: 048
     Dates: start: 20150415, end: 20150419

REACTIONS (10)
  - Hospitalisation [Unknown]
  - Tremor [Not Recovered/Not Resolved]
  - Pain [Recovering/Resolving]
  - Weight decreased [Unknown]
  - Decreased appetite [Not Recovered/Not Resolved]
  - Death [Fatal]
  - Spinal fracture [Unknown]
  - Fall [Unknown]
  - Somnolence [Recovered/Resolved]
  - Gait disturbance [Recovering/Resolving]

NARRATIVE: CASE EVENT DATE: 2015
